FAERS Safety Report 12321379 (Version 2)
Quarter: 2017Q2

REPORT INFORMATION
  Report Type: Report from Study
  Country: JP (occurrence: JP)
  Receive Date: 20160502
  Receipt Date: 20170404
  Transmission Date: 20170830
  Serious: Yes (Life-Threatening, Other)
  Sender: FDA-Public Use
  Company Number: PHJP2015JP018208

PATIENT
  Age: 66 Year
  Sex: Female
  Weight: 54 kg

DRUGS (37)
  1. RENIVACE [Concomitant]
     Active Substance: ENALAPRIL
     Indication: HYPERTENSION
     Dosage: 2.5 MG, UNK
     Route: 048
     Dates: start: 20141227, end: 20150611
  2. NEORAL [Concomitant]
     Active Substance: CYCLOSPORINE
     Dosage: 70 MG, UNK
     Route: 048
     Dates: start: 20150630, end: 20150705
  3. BACTRAMIN [Concomitant]
     Active Substance: SULFAMETHOXAZOLE\TRIMETHOPRIM
     Indication: PROPHYLAXIS
     Dosage: 2 DF, UNK
     Route: 048
     Dates: start: 20151108, end: 20151118
  4. PROGRAF [Suspect]
     Active Substance: TACROLIMUS\TACROLIMUS ANHYDROUS
     Dosage: 4 MG, UNK
     Route: 048
     Dates: start: 20150611, end: 20150613
  5. PROGRAF [Suspect]
     Active Substance: TACROLIMUS\TACROLIMUS ANHYDROUS
     Dosage: 5.0 MG, UNK
     Route: 048
     Dates: start: 20150619, end: 20150623
  6. LIPITOR [Concomitant]
     Active Substance: ATORVASTATIN CALCIUM
     Indication: HYPERLIPIDAEMIA
     Dosage: 10 MG, UNK
     Route: 048
     Dates: end: 20150611
  7. NEORAL [Concomitant]
     Active Substance: CYCLOSPORINE
     Indication: HEART TRANSPLANT
     Dosage: 150 MG, UNK
     Route: 048
     Dates: start: 20150605, end: 20150609
  8. NEORAL [Concomitant]
     Active Substance: CYCLOSPORINE
     Dosage: 70 MG, UNK
     Route: 048
     Dates: start: 20150709, end: 20150709
  9. CERTICAN [Suspect]
     Active Substance: EVEROLIMUS
     Indication: HEART TRANSPLANT
     Dosage: 1.5 MG, UNK
     Route: 048
     Dates: start: 20150220, end: 20150615
  10. CERTICAN [Suspect]
     Active Substance: EVEROLIMUS
     Dosage: 1 MG, QD
     Route: 048
     Dates: start: 20160401
  11. PREDONINE [Suspect]
     Active Substance: PREDNISOLONE
     Dosage: 2.5 MG, UNK
     Route: 048
     Dates: start: 20151029
  12. NEORAL [Concomitant]
     Active Substance: CYCLOSPORINE
     Dosage: 65 MG, UNK
     Route: 048
     Dates: start: 20150710, end: 20150813
  13. CERTICAN [Suspect]
     Active Substance: EVEROLIMUS
     Dosage: 0.75 MG, UNK
     Route: 048
     Dates: start: 20151029, end: 20160331
  14. PREDONINE [Suspect]
     Active Substance: PREDNISOLONE
     Indication: HEART TRANSPLANT
     Dosage: 10 MG, UNK
     Route: 048
     Dates: start: 20150217, end: 20150303
  15. PREDONINE [Suspect]
     Active Substance: PREDNISOLONE
     Dosage: 5 MG, UNK
     Route: 048
     Dates: start: 20150616, end: 20151028
  16. PROGRAF [Suspect]
     Active Substance: TACROLIMUS\TACROLIMUS ANHYDROUS
     Indication: HEART TRANSPLANT
     Dosage: 10 MG, UNK
     Route: 048
     Dates: end: 20150416
  17. PROGRAF [Suspect]
     Active Substance: TACROLIMUS\TACROLIMUS ANHYDROUS
     Dosage: 7 MG, UNK
     Route: 048
     Dates: start: 20150522, end: 20150605
  18. NEORAL [Concomitant]
     Active Substance: CYCLOSPORINE
     Dosage: 65 MG, UNK
     Route: 048
     Dates: start: 20150706, end: 20150708
  19. GLUFAST [Concomitant]
     Active Substance: MITIGLINIDE
     Indication: DIABETES MELLITUS
     Dosage: 15 MG, UNK
     Route: 048
     Dates: start: 20150702, end: 20160107
  20. CERTICAN [Suspect]
     Active Substance: EVEROLIMUS
     Dosage: 1.5 MG, UNK
     Route: 048
     Dates: start: 20150621, end: 20150629
  21. PROGRAF [Suspect]
     Active Substance: TACROLIMUS\TACROLIMUS ANHYDROUS
     Dosage: 8 MG, UNK
     Route: 048
     Dates: start: 20150417, end: 20150521
  22. MYCOPHENOLATE MOFETIL. [Concomitant]
     Active Substance: MYCOPHENOLATE MOFETIL
     Dosage: 1000 MG, UNK
     Route: 048
     Dates: start: 20150221, end: 20150223
  23. LIPITOR [Concomitant]
     Active Substance: ATORVASTATIN CALCIUM
     Dosage: 10 MG, UNK
     Route: 048
     Dates: start: 20150616, end: 20150916
  24. LIPITOR [Concomitant]
     Active Substance: ATORVASTATIN CALCIUM
     Dosage: 20 MG, UNK
     Route: 048
     Dates: start: 20150917
  25. PREDONINE [Suspect]
     Active Substance: PREDNISOLONE
     Dosage: 5 MG, UNK
     Route: 048
     Dates: start: 20150325, end: 20150611
  26. PROGRAF [Suspect]
     Active Substance: TACROLIMUS\TACROLIMUS ANHYDROUS
     Dosage: 3 MG, UNK
     Route: 048
     Dates: start: 20150614, end: 20150615
  27. NEORAL [Concomitant]
     Active Substance: CYCLOSPORINE
     Dosage: 80 MG, UNK
     Route: 048
     Dates: start: 20160205
  28. CERTICAN [Suspect]
     Active Substance: EVEROLIMUS
     Dosage: 0.5 MG, UNK
     Route: 048
     Dates: start: 20150617, end: 20150618
  29. PREDONINE [Suspect]
     Active Substance: PREDNISOLONE
     Dosage: 7.5 MG, UNK
     Route: 048
     Dates: start: 20150304, end: 20150324
  30. PROGRAF [Suspect]
     Active Substance: TACROLIMUS\TACROLIMUS ANHYDROUS
     Dosage: 3.5 MG, UNK
     Route: 048
     Dates: start: 20150616, end: 20150617
  31. PROGRAF [Suspect]
     Active Substance: TACROLIMUS\TACROLIMUS ANHYDROUS
     Dosage: 4.0 MG, UNK
     Route: 048
     Dates: start: 20150618, end: 20150618
  32. NEORAL [Concomitant]
     Active Substance: CYCLOSPORINE
     Dosage: 50 MG, UNK
     Route: 048
     Dates: start: 20150609, end: 20150610
  33. CERTICAN [Suspect]
     Active Substance: EVEROLIMUS
     Dosage: 1.0 MG, UNK
     Route: 048
     Dates: start: 20150619, end: 20150620
  34. CERTICAN [Suspect]
     Active Substance: EVEROLIMUS
     Dosage: 1.0 MG, UNK
     Route: 048
     Dates: start: 20150630, end: 20151028
  35. MYCOPHENOLATE MOFETIL. [Concomitant]
     Active Substance: MYCOPHENOLATE MOFETIL
     Indication: HEART TRANSPLANT
     Dosage: 2000 MG, UNK
     Route: 048
     Dates: end: 20150220
  36. NEORAL [Concomitant]
     Active Substance: CYCLOSPORINE
     Dosage: 80 MG, UNK
     Route: 048
     Dates: start: 20150624, end: 20150629
  37. NEORAL [Concomitant]
     Active Substance: CYCLOSPORINE
     Dosage: 70 MG, UNK
     Route: 048
     Dates: start: 20150814, end: 20160204

REACTIONS (5)
  - Diabetes mellitus [Not Recovered/Not Resolved]
  - Infection [Recovered/Resolved]
  - Pyrexia [Unknown]
  - Disseminated intravascular coagulation [Recovered/Resolved]
  - Infection [Recovered/Resolved]

NARRATIVE: CASE EVENT DATE: 20150323
